FAERS Safety Report 9393999 (Version 1)
Quarter: 2013Q3

REPORT INFORMATION
  Report Type: Spontaneous
  Country: US (occurrence: US)
  Receive Date: 20130710
  Receipt Date: 20130710
  Transmission Date: 20140515
  Serious: Yes (Other)
  Sender: FDA-Public Use
  Company Number: CHPA2013US010894

PATIENT
  Age: 69 Year
  Sex: Female

DRUGS (1)
  1. VOLTAREN GEL [Suspect]
     Indication: PAIN
     Dosage: UNK, PRN
     Route: 061

REACTIONS (2)
  - Intervertebral disc degeneration [Unknown]
  - Wrong technique in drug usage process [Unknown]
